FAERS Safety Report 26011420 (Version 1)
Quarter: 2025Q4

REPORT INFORMATION
  Report Type: Spontaneous
  Country: US (occurrence: None)
  Receive Date: 20251106
  Receipt Date: 20251106
  Transmission Date: 20260117
  Serious: Yes (Hospitalization)
  Sender: FDA-CTU
  Company Number: None

PATIENT
  Age: 70 Year
  Sex: Male
  Weight: 106.3 kg

DRUGS (1)
  1. ENFORTUMAB VEDOTIN [Suspect]
     Active Substance: ENFORTUMAB VEDOTIN
     Indication: Hepatocellular carcinoma
     Dosage: OTHER FREQUENCY : D1,8,15Q28DAYS;?
     Route: 042
     Dates: start: 20251024, end: 20251030

REACTIONS (5)
  - Diarrhoea [None]
  - Pyrexia [None]
  - Chills [None]
  - Refusal of treatment by patient [None]
  - Dyspnoea [None]

NARRATIVE: CASE EVENT DATE: 20251106
